FAERS Safety Report 8471402-1 (Version None)
Quarter: 2012Q2

REPORT INFORMATION
  Report Type: 
  Country: None (occurrence: None)
  Receive Date: 20120627
  Receipt Date: 20120619
  Transmission Date: 20120825
  Serious: Yes (Other)
  Sender: FDA-Public Use
  Company Number: FI-FRI-1000036655

PATIENT
  Sex: Female

DRUGS (4)
  1. MEMANTINE HCL [Suspect]
  2. PRIMASPAN [Concomitant]
     Dosage: 100 MG
  3. MEMANTINE HCL [Suspect]
     Indication: DEMENTIA ALZHEIMER'S TYPE
     Route: 048
     Dates: start: 20110801
  4. LEVOTHYROXINE SODIUM [Concomitant]
     Dosage: 0.25 MG

REACTIONS (3)
  - MOOD SWINGS [None]
  - DEPRESSION [None]
  - SUICIDAL IDEATION [None]
